FAERS Safety Report 6607229-2 (Version None)
Quarter: 2010Q1

REPORT INFORMATION
  Report Type: 
  Country: None (occurrence: None)
  Receive Date: 20100223
  Receipt Date: 20100223
  Transmission Date: 20100710
  Serious: Yes (Hospitalization)
  Sender: FDA-Public Use
  Company Number: None

PATIENT
  Sex: Female
  Weight: 191.2 kg

DRUGS (1)
  1. NORDITROPIN [Suspect]
     Indication: BLOOD GROWTH HORMONE
     Dosage: 0.25 MG QD SQ
     Route: 058
     Dates: start: 20061031

REACTIONS (1)
  - EMPHYSEMA [None]
